FAERS Safety Report 7050012-7 (Version None)
Quarter: 2010Q4

REPORT INFORMATION
  Report Type: 
  Country: None (occurrence: None)
  Receive Date: 20101018
  Receipt Date: 20100416
  Transmission Date: 20110411
  Serious: Yes (Other)
  Sender: FDA-Public Use
  Company Number: US-BAYER-201017904NA

PATIENT
  Age: 24 Year
  Sex: Female
  Weight: 72 kg

DRUGS (3)
  1. YASMIN [Suspect]
     Indication: PRODUCT USED FOR UNKNOWN INDICATION
     Route: 048
     Dates: start: 20070501, end: 20091201
  2. ADVIL [Concomitant]
  3. LITHIUM [Concomitant]
     Dates: start: 20070101

REACTIONS (7)
  - ABDOMINAL PAIN [None]
  - ABDOMINAL PAIN UPPER [None]
  - CHOLECYSTITIS [None]
  - CHOLELITHIASIS [None]
  - DIARRHOEA [None]
  - PAIN [None]
  - POST GASTRIC SURGERY SYNDROME [None]
